FAERS Safety Report 14033463 (Version 1)
Quarter: 2017Q4

REPORT INFORMATION
  Report Type: Spontaneous
  Country: US (occurrence: US)
  Receive Date: 20171002
  Receipt Date: 20171002
  Transmission Date: 20180321
  Serious: No
  Sender: FDA-Public Use
  Company Number: US-JAZZ-2017-US-010667

PATIENT
  Sex: Male

DRUGS (25)
  1. NORCO [Suspect]
     Active Substance: ACETAMINOPHEN\HYDROCODONE BITARTRATE
     Indication: PRODUCT USED FOR UNKNOWN INDICATION
  2. TYLENOL WITH CODEINE [Concomitant]
     Active Substance: ACETAMINOPHEN\CODEINE PHOSPHATE
  3. FLEXERIL [Concomitant]
     Active Substance: CYCLOBENZAPRINE HYDROCHLORIDE
  4. MEDROL [Concomitant]
     Active Substance: METHYLPREDNISOLONE
  5. SYNTHROID [Concomitant]
     Active Substance: LEVOTHYROXINE SODIUM
  6. NUVIGIL [Concomitant]
     Active Substance: ARMODAFINIL
  7. TORADOL [Concomitant]
     Active Substance: KETOROLAC TROMETHAMINE
  8. TOPAMAX [Concomitant]
     Active Substance: TOPIRAMATE
  9. NOVOLOG [Concomitant]
     Active Substance: INSULIN ASPART
  10. CYMBALTA [Concomitant]
     Active Substance: DULOXETINE HYDROCHLORIDE
  11. KLONOPIN [Concomitant]
     Active Substance: CLONAZEPAM
  12. TRAMADOL HCL [Concomitant]
     Active Substance: TRAMADOL HYDROCHLORIDE
  13. HYDROXYZINE HCL [Concomitant]
     Active Substance: HYDROXYZINE HYDROCHLORIDE
  14. LANTUS [Concomitant]
     Active Substance: INSULIN GLARGINE
  15. XYREM [Suspect]
     Active Substance: SODIUM OXYBATE
     Indication: NARCOLEPSY
     Dosage: 3G, BID
     Route: 048
     Dates: start: 201507
  16. CLONAZEPAM. [Concomitant]
     Active Substance: CLONAZEPAM
  17. AMARYL [Concomitant]
     Active Substance: GLIMEPIRIDE
  18. METHADONE HCL [Concomitant]
     Active Substance: METHADONE HYDROCHLORIDE
  19. CLONIDINE HCL [Concomitant]
     Active Substance: CLONIDINE HYDROCHLORIDE
  20. LYRICA [Concomitant]
     Active Substance: PREGABALIN
  21. BACLOFEN. [Concomitant]
     Active Substance: BACLOFEN
  22. MELOXICAM. [Concomitant]
     Active Substance: MELOXICAM
  23. XYREM [Suspect]
     Active Substance: SODIUM OXYBATE
     Indication: CATAPLEXY
  24. METHADONE [Concomitant]
     Active Substance: METHADONE HYDROCHLORIDE
  25. LIDOCAINE. [Concomitant]
     Active Substance: LIDOCAINE

REACTIONS (1)
  - Malaise [Unknown]
